FAERS Safety Report 16094116 (Version 1)
Quarter: 2019Q1

REPORT INFORMATION
  Report Type: Spontaneous
  Country: US (occurrence: US)
  Receive Date: 20190320
  Receipt Date: 20190320
  Transmission Date: 20190418
  Serious: No
  Sender: FDA-Public Use
  Company Number: US-DRREDDYS-USA/USA/19/0108687

PATIENT
  Sex: Female

DRUGS (1)
  1. FEXOFENADINE HCL [Suspect]
     Active Substance: FEXOFENADINE HYDROCHLORIDE
     Indication: PRODUCT USED FOR UNKNOWN INDICATION
     Dosage: INDOOR AND OUTDOOR ALLERGY RELIEF (FEXOFENADINE HCL) TABLETS 180MG OTC-CVS 180CT-916473

REACTIONS (4)
  - Lacrimation increased [Unknown]
  - Drug ineffective [Unknown]
  - Product quality issue [Unknown]
  - Rhinorrhoea [Unknown]
